APPROVED DRUG PRODUCT: ISOPROTERENOL HYDROCHLORIDE
Active Ingredient: ISOPROTERENOL HYDROCHLORIDE
Strength: 0.12MG/INH
Dosage Form/Route: AEROSOL, METERED;INHALATION
Application: A085904 | Product #001
Applicant: ALPHARMA US PHARMACEUTICALS DIVISION
Approved: Approved Prior to Jan 1, 1982 | RLD: No | RS: No | Type: DISCN